FAERS Safety Report 23590502 (Version 1)
Quarter: 2024Q1

REPORT INFORMATION
  Report Type: Spontaneous
  Country: SI (occurrence: SI)
  Receive Date: 20240304
  Receipt Date: 20240304
  Transmission Date: 20240409
  Serious: Yes (Life-Threatening)
  Sender: FDA-Public Use
  Company Number: None

PATIENT
  Age: 66 Year
  Sex: Male
  Weight: 130 kg

DRUGS (4)
  1. PRADAXA [Suspect]
     Active Substance: DABIGATRAN ETEXILATE MESYLATE
     Indication: Atrial fibrillation
     Route: 048
     Dates: start: 20210408
  2. Wamlox 5 MG + 160 MG [Concomitant]
     Indication: Product used for unknown indication
     Dosage: STRENGHT: 5 MG/160 MG
  3. Sorvitimb [Concomitant]
     Indication: Product used for unknown indication
     Dosage: STRENGHT: 40 MG/10 MG
  4. CONCOR COR 2,5 MG [Concomitant]
     Indication: Product used for unknown indication

REACTIONS (2)
  - Drug ineffective [Recovering/Resolving]
  - Cerebrovascular accident [Recovering/Resolving]

NARRATIVE: CASE EVENT DATE: 20240215
